FAERS Safety Report 10548444 (Version 3)
Quarter: 2014Q4

REPORT INFORMATION
  Report Type: Spontaneous
  Country: US (occurrence: US)
  Receive Date: 20141028
  Receipt Date: 20141103
  Transmission Date: 20150529
  Serious: No
  Sender: FDA-Public Use
  Company Number: US-009507513-1410USA001283

PATIENT
  Age: 19 Year
  Sex: Female

DRUGS (1)
  1. NEXPLANON [Suspect]
     Active Substance: ETONOGESTREL
     Indication: CONTRACEPTION
     Dosage: UNK
     Route: 059
     Dates: start: 20140916

REACTIONS (4)
  - Device expulsion [Unknown]
  - Product quality issue [Unknown]
  - Implant site pustules [Unknown]
  - Implant site discharge [Unknown]

NARRATIVE: CASE EVENT DATE: 2014
